FAERS Safety Report 23144812 (Version 4)
Quarter: 2023Q4

REPORT INFORMATION
  Report Type: Spontaneous
  Country: US (occurrence: US)
  Receive Date: 20231103
  Receipt Date: 20231204
  Transmission Date: 20240110
  Serious: Yes (Death)
  Sender: FDA-Public Use
  Company Number: US-DAIICHI SANKYO, INC.-DSU-2023-144276AA

PATIENT
  Age: 47 Year
  Sex: Female

DRUGS (2)
  1. ENHERTU [Suspect]
     Active Substance: FAM-TRASTUZUMAB DERUXTECAN-NXKI
     Indication: Breast cancer female
     Dosage: UNK
     Route: 065
  2. TUKYSA [Suspect]
     Active Substance: TUCATINIB
     Indication: Breast cancer female
     Dosage: UNK
     Route: 065

REACTIONS (16)
  - Death [Fatal]
  - Pneumothorax [Unknown]
  - Metatarsalgia [Unknown]
  - Bedridden [Unknown]
  - Housebound [Unknown]
  - Lymphoedema [Unknown]
  - Staphylococcal infection [Unknown]
  - Erythema [Unknown]
  - Skin exfoliation [Unknown]
  - Hypersomnia [Unknown]
  - Nail bed infection [Unknown]
  - Erythema [Unknown]
  - Unevaluable event [Unknown]
  - Constipation [Unknown]
  - Pain in extremity [Unknown]
  - Diarrhoea [Recovered/Resolved]

NARRATIVE: CASE EVENT DATE: 20231125
